FAERS Safety Report 21754168 (Version 1)
Quarter: 2022Q4

REPORT INFORMATION
  Report Type: Spontaneous
  Country: US (occurrence: US)
  Receive Date: 20221220
  Receipt Date: 20221220
  Transmission Date: 20230112
  Serious: No
  Sender: FDA-Public Use
  Company Number: US-BRISTOL-MYERS SQUIBB COMPANY-2022-154186

PATIENT
  Age: 59 Year
  Sex: Female
  Weight: 50 kg

DRUGS (30)
  1. REVLIMID [Suspect]
     Active Substance: LENALIDOMIDE
     Indication: Plasma cell myeloma
     Dosage: 1X 28/28 DAYS
     Route: 048
     Dates: start: 20210811
  2. REVLIMID [Suspect]
     Active Substance: LENALIDOMIDE
     Dosage: 1X 28/28 DAYS
     Route: 048
     Dates: start: 20220531, end: 20220628
  3. REVLIMID [Suspect]
     Active Substance: LENALIDOMIDE
     Dosage: 1X 28/28 DAYS
     Route: 048
     Dates: start: 20220628, end: 20220726
  4. REVLIMID [Suspect]
     Active Substance: LENALIDOMIDE
     Dosage: 1X 28/28 DAYS
     Route: 048
     Dates: start: 20220726, end: 20220822
  5. REVLIMID [Suspect]
     Active Substance: LENALIDOMIDE
     Dosage: 1X 28/28 DAYS
     Route: 048
     Dates: start: 20220822, end: 20220919
  6. REVLIMID [Suspect]
     Active Substance: LENALIDOMIDE
     Dosage: 1X 28/28 DAYS
     Route: 048
     Dates: start: 20220919, end: 20221017
  7. REVLIMID [Suspect]
     Active Substance: LENALIDOMIDE
     Dosage: 1X 28/28 DAYS
     Route: 048
     Dates: start: 20221017, end: 20221213
  8. REVLIMID [Suspect]
     Active Substance: LENALIDOMIDE
     Dosage: 1X 28/28 DAYS
     Route: 048
     Dates: start: 20221213
  9. REVLIMID [Suspect]
     Active Substance: LENALIDOMIDE
     Dosage: 1X 28/28 DAYS
     Route: 048
     Dates: start: 20210804, end: 20210831
  10. REVLIMID [Suspect]
     Active Substance: LENALIDOMIDE
     Dosage: 1X 28/28 DAYS
     Route: 048
     Dates: start: 20210831, end: 20211004
  11. REVLIMID [Suspect]
     Active Substance: LENALIDOMIDE
     Dosage: 1X 28/28 DAYS
     Route: 048
     Dates: start: 20211004, end: 20211022
  12. REVLIMID [Suspect]
     Active Substance: LENALIDOMIDE
     Dosage: 1X 28/28 DAYS
     Route: 048
     Dates: start: 20211022, end: 20211123
  13. REVLIMID [Suspect]
     Active Substance: LENALIDOMIDE
     Dosage: 1X 28/28 DAYS
     Route: 048
     Dates: start: 20211123, end: 20211207
  14. REVLIMID [Suspect]
     Active Substance: LENALIDOMIDE
     Dosage: 1X 28/28 DAYS
     Route: 048
     Dates: start: 20211207, end: 20220106
  15. REVLIMID [Suspect]
     Active Substance: LENALIDOMIDE
     Dosage: 1X 28/28 DAYS
     Route: 048
     Dates: start: 20220106, end: 20220127
  16. REVLIMID [Suspect]
     Active Substance: LENALIDOMIDE
     Dosage: 1X 28/28 DAYS
     Route: 048
     Dates: start: 20220127, end: 20220217
  17. REVLIMID [Suspect]
     Active Substance: LENALIDOMIDE
     Dosage: 1X 28/28 DAYS
     Route: 048
     Dates: start: 20220217, end: 20220310
  18. REVLIMID [Suspect]
     Active Substance: LENALIDOMIDE
     Dosage: 1X 28/28 DAYS
     Route: 048
     Dates: start: 20220310, end: 20220531
  19. DEXAMETHASONE [Suspect]
     Active Substance: DEXAMETHASONE
     Indication: Product used for unknown indication
     Dosage: PRN
     Route: 048
     Dates: start: 20210831
  20. ACYCLOVIR [Concomitant]
     Active Substance: ACYCLOVIR
     Indication: Product used for unknown indication
     Route: 048
     Dates: start: 20211215, end: 20211216
  21. ACYCLOVIR [Concomitant]
     Active Substance: ACYCLOVIR
     Route: 048
     Dates: start: 20210804, end: 20220603
  22. ALLOPURINOL [Concomitant]
     Active Substance: ALLOPURINOL
     Indication: Product used for unknown indication
     Route: 048
     Dates: start: 20210804
  23. ASPIRIN [Concomitant]
     Active Substance: ASPIRIN
     Indication: Product used for unknown indication
     Route: 048
     Dates: start: 20210810
  24. AZITHROMYCIN [Concomitant]
     Active Substance: AZITHROMYCIN
     Indication: Product used for unknown indication
     Dosage: PRN
     Route: 048
     Dates: start: 20210804
  25. CLARITIN [Concomitant]
     Active Substance: LORATADINE
     Indication: Product used for unknown indication
     Route: 048
     Dates: start: 20220603
  26. FAMOTIDINE [Concomitant]
     Active Substance: FAMOTIDINE
     Indication: Product used for unknown indication
     Route: 048
     Dates: start: 20210804
  27. PRILOSEC [Concomitant]
     Active Substance: OMEPRAZOLE MAGNESIUM
     Indication: Product used for unknown indication
     Route: 048
     Dates: start: 20220603, end: 20220729
  28. PROCHLORPERAZINE MALEATE [Concomitant]
     Active Substance: PROCHLORPERAZINE MALEATE
     Indication: Product used for unknown indication
     Dosage: PRN
     Route: 048
     Dates: start: 20210804
  29. VELCADE [Concomitant]
     Active Substance: BORTEZOMIB
     Indication: Product used for unknown indication
     Dosage: ROA: INJECTION
     Route: 050
     Dates: start: 20210831
  30. VITAMIN D [Concomitant]
     Active Substance: VITAMIN D NOS
     Indication: Product used for unknown indication
     Dosage: ROA: INJECTION
     Route: 050
     Dates: start: 20210810

REACTIONS (1)
  - Petechiae [Not Recovered/Not Resolved]

NARRATIVE: CASE EVENT DATE: 20221114
